FAERS Safety Report 6034506-9 (Version None)
Quarter: 2009Q1

REPORT INFORMATION
  Report Type: 
  Country: None (occurrence: None)
  Receive Date: 20090106
  Receipt Date: 20081223
  Transmission Date: 20090719
  Serious: Yes (Death)
  Sender: FDA-Public Use
  Company Number: 8040684

PATIENT
  Age: 29 Year
  Sex: Female

DRUGS (4)
  1. HYDROCODONE BITARTRATE AND ACETAMINOPHEN [Suspect]
     Dates: end: 20070101
  2. ALPRAZOLAM [Suspect]
     Dates: end: 20070101
  3. OXYCODONE AND ACETAMINOPHEN [Suspect]
     Dates: end: 20070101
  4. OXYCODONE HCL [Suspect]
     Dates: end: 20070101

REACTIONS (2)
  - COMPLETED SUICIDE [None]
  - INTENTIONAL DRUG MISUSE [None]
